FAERS Safety Report 18200189 (Version 2)
Quarter: 2020Q3

REPORT INFORMATION
  Report Type: Spontaneous
  Country: US (occurrence: US)
  Receive Date: 20200826
  Receipt Date: 20200914
  Transmission Date: 20201103
  Serious: No
  Sender: FDA-Public Use
  Company Number: US-TEVA-2020-US-1818208

PATIENT
  Age: 31 Year
  Sex: Female
  Weight: 78.47 kg

DRUGS (8)
  1. CAMRESE [Suspect]
     Active Substance: ETHINYL ESTRADIOL\LEVONORGESTREL
     Indication: PROPHYLAXIS
     Dosage: LEVONORGESTREL/ESTRADIOL TABLETS 0.15 MG/0.03 MG AND ETHINYL ESTRADIOL TABLETS 0.01 MG
     Route: 065
     Dates: start: 202002
  2. VITAMIN C [Concomitant]
     Active Substance: ASCORBIC ACID
  3. PROZAC [Concomitant]
     Active Substance: FLUOXETINE HYDROCHLORIDE
     Indication: SEROTONIN DEFICIENCY
     Dosage: 40 MG IN MORNING
  4. BIOTIN [Concomitant]
     Active Substance: BIOTIN
  5. VITAMIN D [Concomitant]
     Active Substance: VITAMIN D NOS
  6. MULTIVITAMIN [Concomitant]
     Active Substance: VITAMINS
  7. VIVISCAL [Concomitant]
     Indication: HAIR DISORDER
  8. BERGAMAT [Concomitant]
     Indication: BLOOD CHOLESTEROL

REACTIONS (2)
  - Metrorrhagia [Not Recovered/Not Resolved]
  - Product use in unapproved indication [Unknown]

NARRATIVE: CASE EVENT DATE: 202002
